FAERS Safety Report 24942139 (Version 5)
Quarter: 2025Q3

REPORT INFORMATION
  Report Type: Report from Study
  Country: CA (occurrence: CA)
  Receive Date: 20250207
  Receipt Date: 20250803
  Transmission Date: 20251021
  Serious: Yes (Other)
  Sender: ALEXION PHARMACEUTICALS
  Company Number: CA-AstraZeneca-CH-00801010A

PATIENT
  Sex: Female

DRUGS (4)
  1. CAPIVASERTIB [Suspect]
     Active Substance: CAPIVASERTIB
     Indication: Breast cancer
     Dosage: 400 MILLIGRAM, BID
     Dates: start: 20250204
  2. FASLODEX [Suspect]
     Active Substance: FULVESTRANT
     Indication: Breast cancer
     Dosage: 500 MILLIGRAM, 2 TIMES A WEEK
     Dates: start: 20250204
  3. FASLODEX [Suspect]
     Active Substance: FULVESTRANT
  4. LORATADINE [Concomitant]
     Active Substance: LORATADINE
     Route: 065

REACTIONS (4)
  - Pulmonary oedema [Unknown]
  - Blood glucose fluctuation [Unknown]
  - Blood glucose increased [Unknown]
  - Rash [Recovering/Resolving]
